FAERS Safety Report 20948440 (Version 1)
Quarter: 2022Q2

REPORT INFORMATION
  Report Type: Spontaneous
  Country: GB (occurrence: GB)
  Receive Date: 20220612
  Receipt Date: 20220612
  Transmission Date: 20220720
  Serious: Yes (Hospitalization, Other)
  Sender: FDA-Public Use
  Company Number: GB-JNJFOC-20220610515

PATIENT
  Age: 15 Year
  Sex: Male
  Weight: 68 kg

DRUGS (1)
  1. CONCERTA [Suspect]
     Active Substance: METHYLPHENIDATE HYDROCHLORIDE
     Indication: Attention deficit hyperactivity disorder
     Dosage: 36MG IN MORNING; ;
     Route: 048
     Dates: start: 20170701

REACTIONS (2)
  - Gastritis [Not Recovered/Not Resolved]
  - Gastritis [Recovered/Resolved]

NARRATIVE: CASE EVENT DATE: 20170901
